FAERS Safety Report 4477652-3 (Version None)
Quarter: 2004Q3

REPORT INFORMATION
  Report Type: 
  Country: None (occurrence: None)
  Receive Date: 20040923
  Receipt Date: 20040614
  Transmission Date: 20050211
  Serious: No
  Sender: FDA-Public Use
  Company Number: USA040670059

PATIENT
  Age: 75 Year
  Sex: Female
  Weight: 54 kg

DRUGS (15)
  1. FORTEO [Suspect]
     Indication: OSTEOPOROSIS
  2. SEREVENT [Concomitant]
  3. AZMACORT [Concomitant]
  4. LEVOXYL [Concomitant]
  5. PREMARIN [Concomitant]
  6. MEDROXYPROGESTERONE [Concomitant]
  7. VIOXX [Concomitant]
  8. DIOVAN [Concomitant]
  9. NORVASC [Concomitant]
  10. CALCITRIOL [Concomitant]
  11. VITAMIN C [Concomitant]
  12. VITAMIN D [Concomitant]
  13. VITAMIN E [Concomitant]
  14. DURAGESIC [Concomitant]
  15. LIDODERM (LIDOCAINE) [Concomitant]

REACTIONS (5)
  - HYPOAESTHESIA [None]
  - NECK PAIN [None]
  - PAIN [None]
  - SCIATICA [None]
  - UNEVALUABLE EVENT [None]
